FAERS Safety Report 23077767 (Version 1)
Quarter: 2023Q4

REPORT INFORMATION
  Report Type: Spontaneous
  Country: FR (occurrence: FR)
  Receive Date: 20231018
  Receipt Date: 20231018
  Transmission Date: 20240110
  Serious: Yes (Other)
  Sender: FDA-Public Use
  Company Number: None

PATIENT

DRUGS (1)
  1. SERETIDE [Suspect]
     Active Substance: FLUTICASONE PROPIONATE\SALMETEROL XINAFOATE
     Indication: Asthma
     Dosage: 2 DF, QD
     Route: 055
     Dates: start: 20230102

REACTIONS (6)
  - Behaviour disorder [Recovered/Resolved]
  - Petit mal epilepsy [Recovered/Resolved]
  - Depression [Recovered/Resolved]
  - Staring [Recovered/Resolved]
  - Anxiety [Recovered/Resolved]
  - Decreased eye contact [Recovered/Resolved]

NARRATIVE: CASE EVENT DATE: 20230105
